FAERS Safety Report 6392624-X (Version None)
Quarter: 2009Q4

REPORT INFORMATION
  Report Type: 
  Country: None (occurrence: None)
  Receive Date: 20091007
  Receipt Date: 20090720
  Transmission Date: 20100525
  Serious: No
  Sender: FDA-Public Use
  Company Number: US-ALLERGAN-0909756US

PATIENT
  Age: 70 Year
  Sex: Female
  Weight: 56.689 kg

DRUGS (3)
  1. LATISSE [Suspect]
     Indication: GROWTH OF EYELASHES
  2. ZOLOFT [Concomitant]
     Dosage: 100 MG, QD
  3. WELLBUTRIN [Concomitant]
     Dosage: 150 MG, QD

REACTIONS (3)
  - BLEPHARITIS [None]
  - EYE DISCHARGE [None]
  - RASH PRURITIC [None]
